FAERS Safety Report 6382654-6 (Version None)
Quarter: 2009Q3

REPORT INFORMATION
  Report Type: 
  Country: None (occurrence: None)
  Receive Date: 20090928
  Receipt Date: 20090928
  Transmission Date: 20100115
  Serious: Yes (Life-Threatening, Hospitalization)
  Sender: FDA-Public Use
  Company Number: None

PATIENT
  Age: 59 Year
  Sex: Female

DRUGS (2)
  1. FENTANYL-50 [Suspect]
     Indication: INTERVERTEBRAL DISC DEGENERATION
     Dosage: 50 MCG Q72HRS TRANSDERMAL
     Route: 062
     Dates: start: 20090801, end: 20090801
  2. FENTANYL-50 [Suspect]
     Indication: PAIN
     Dosage: 50 MCG Q72HRS TRANSDERMAL
     Route: 062
     Dates: start: 20090801, end: 20090801

REACTIONS (6)
  - CONFUSIONAL STATE [None]
  - DEPRESSED LEVEL OF CONSCIOUSNESS [None]
  - DISORIENTATION [None]
  - OVERDOSE [None]
  - PRODUCT SUBSTITUTION ISSUE [None]
  - RESPIRATORY DEPRESSION [None]
